FAERS Safety Report 7763150-8 (Version None)
Quarter: 2011Q3

REPORT INFORMATION
  Report Type: 
  Country: None (occurrence: None)
  Receive Date: 20110920
  Receipt Date: 20110912
  Transmission Date: 20111222
  Serious: Yes (Hospitalization)
  Sender: FDA-Public Use
  Company Number: PHEH2011US04023

PATIENT
  Sex: Female

DRUGS (7)
  1. RECLAST [Suspect]
     Dosage: UNK UKN, UNK
     Route: 042
     Dates: start: 20110803
  2. LOPRESSOR [Concomitant]
     Dosage: UNK UKN, UNK
  3. Q10 VITAMINS [Concomitant]
     Dosage: UNK UKN, UNK
  4. LOVAZA [Concomitant]
     Dosage: UNK UKN, UNK
  5. CALCIUM CARBONATE [Concomitant]
     Dosage: UNK UKN, UNK
  6. FOLIC ACID [Concomitant]
     Dosage: UNK UKN, UNK
  7. HYDROCHLORIC ACID [Concomitant]
     Dosage: UNK UKN, UNK

REACTIONS (5)
  - DISORIENTATION [None]
  - HEADACHE [None]
  - HYPOAESTHESIA [None]
  - HYPOAESTHESIA ORAL [None]
  - PYREXIA [None]
